FAERS Safety Report 6186114-7 (Version None)
Quarter: 2009Q2

REPORT INFORMATION
  Report Type: 
  Country: None (occurrence: None)
  Receive Date: 20090507
  Receipt Date: 20090507
  Transmission Date: 20091009
  Serious: Yes (Hospitalization)
  Sender: FDA-Public Use
  Company Number: None

PATIENT
  Sex: Female
  Weight: 88.09 kg

DRUGS (12)
  1. CYCLOPHOSPHAMIDE [Suspect]
     Dosage: 1200 MG
  2. TAXOTERE [Suspect]
     Dosage: 150 MG
  3. BENICAR [Concomitant]
  4. CRESTOR [Concomitant]
  5. CYMBALTA [Concomitant]
  6. FLEXERIL [Concomitant]
  7. IMITREX [Concomitant]
  8. KLONOPIN [Concomitant]
  9. NEXIUM [Concomitant]
  10. PATANOL [Concomitant]
  11. REGLAN [Concomitant]
  12. VOLTAREN [Concomitant]

REACTIONS (11)
  - ABDOMINAL PAIN [None]
  - BLOOD CREATININE INCREASED [None]
  - COLITIS [None]
  - HYPOTENSION [None]
  - MICTURITION DISORDER [None]
  - NAUSEA [None]
  - NEUTROPENIA [None]
  - RESPIRATORY ARREST [None]
  - SEPSIS [None]
  - TACHYCARDIA [None]
  - VOMITING [None]
